FAERS Safety Report 9004293 (Version 1)
Quarter: 2013Q1

REPORT INFORMATION
  Report Type: Spontaneous
  Country: US (occurrence: US)
  Receive Date: 20130108
  Receipt Date: 20130108
  Transmission Date: 20140127
  Serious: Yes (Death)
  Sender: FDA-Public Use
  Company Number: US-ASTRAZENECA-2013SE01162

PATIENT
  Age: 54 Year
  Sex: Female

DRUGS (9)
  1. LISINOPRIL [Suspect]
     Route: 048
  2. RISPERIDONE [Suspect]
     Route: 048
  3. OXCARBAZEPINE [Suspect]
     Route: 048
  4. AMLODIPINE [Suspect]
     Route: 048
  5. GABAPENTIN [Suspect]
     Route: 048
  6. BUSPIRONE [Suspect]
     Route: 048
  7. LAMOTRIGINE [Suspect]
     Route: 048
  8. HYDROXYZINE [Suspect]
     Route: 048
  9. FLUOXETINE [Suspect]
     Route: 048

REACTIONS (2)
  - Completed suicide [Fatal]
  - Toxicity to various agents [Fatal]
